FAERS Safety Report 4490443-2 (Version None)
Quarter: 2004Q4

REPORT INFORMATION
  Report Type: 
  Country: None (occurrence: None)
  Receive Date: 20041102
  Receipt Date: 20041026
  Transmission Date: 20050328
  Serious: Yes (Other)
  Sender: FDA-Public Use
  Company Number: PHFR2004GB03999

PATIENT
  Age: 15 Year
  Sex: Female

DRUGS (1)
  1. RITALIN [Suspect]
     Dosage: 30 MG/DAY

REACTIONS (1)
  - HEPATITIS C POSITIVE [None]
